FAERS Safety Report 5899692-X (Version None)
Quarter: 2008Q3

REPORT INFORMATION
  Report Type: 
  Country: None (occurrence: None)
  Receive Date: 20080926
  Receipt Date: 20080912
  Transmission Date: 20090109
  Serious: Yes (Hospitalization, Other)
  Sender: FDA-Public Use
  Company Number: US-ELI_LILLY_AND_COMPANY-US200809003252

PATIENT
  Sex: Female

DRUGS (2)
  1. FORTEO [Suspect]
     Indication: OSTEOPOROSIS
     Dosage: UNK, UNK
     Dates: start: 20080712, end: 20080801
  2. FORTEO [Suspect]
     Dates: start: 20080101

REACTIONS (3)
  - COLON POLYPECTOMY [None]
  - LARGE INTESTINAL HAEMORRHAGE [None]
  - RENAL FAILURE [None]
